FAERS Safety Report 11531212 (Version 1)
Quarter: 2015Q3

REPORT INFORMATION
  Report Type: Spontaneous
  Country: US (occurrence: None)
  Receive Date: 20150921
  Receipt Date: 20150921
  Transmission Date: 20151125
  Serious: Yes (Life-Threatening, Hospitalization, Other)
  Sender: FDA-Public Use
  Company Number: ADR-2015-01304

PATIENT
  Age: 63 Year
  Sex: Female

DRUGS (1)
  1. BACLOFEN INTRATHECAL 2000MCG/ML [Suspect]
     Active Substance: BACLOFEN
     Indication: MUSCLE SPASTICITY
     Dosage: SEE B5

REACTIONS (8)
  - Fatigue [None]
  - Aphasia [None]
  - Depressed level of consciousness [None]
  - Coma [None]
  - Mental status changes [None]
  - Vomiting [None]
  - Respiratory depression [None]
  - Overdose [None]
